FAERS Safety Report 18192010 (Version 2)
Quarter: 2020Q4

REPORT INFORMATION
  Report Type: Spontaneous
  Country: US (occurrence: US)
  Receive Date: 20200825
  Receipt Date: 20201007
  Transmission Date: 20210113
  Serious: No
  Sender: FDA-Public Use
  Company Number: US-BRISTOL-MYERS SQUIBB COMPANY-BMS-2020-067434

PATIENT
  Age: 80 Year
  Sex: Male
  Weight: 111.13 kg

DRUGS (1)
  1. ELIQUIS [Suspect]
     Active Substance: APIXABAN
     Indication: HYPERTENSION
     Dosage: 5 MILLIGRAM, BID
     Route: 048
     Dates: start: 202001

REACTIONS (3)
  - Contusion [Unknown]
  - Intentional product use issue [Unknown]
  - Injury [Unknown]

NARRATIVE: CASE EVENT DATE: 202001
